FAERS Safety Report 25304920 (Version 1)
Quarter: 2025Q2

REPORT INFORMATION
  Report Type: Spontaneous
  Country: AU (occurrence: AU)
  Receive Date: 20250513
  Receipt Date: 20250513
  Transmission Date: 20250716
  Serious: Yes (Death, Other)
  Sender: RECKITT BENCKISER
  Company Number: AU-INDIVIOR UK LIMITED-INDV-162107-2025

PATIENT

DRUGS (3)
  1. BUPRENORPHINE [Suspect]
     Active Substance: BUPRENORPHINE
     Indication: Product used for unknown indication
     Route: 065
  2. INVEGA [Suspect]
     Active Substance: PALIPERIDONE
     Indication: Product used for unknown indication
     Route: 065
  3. ACETAMINOPHEN [Suspect]
     Active Substance: ACETAMINOPHEN
     Indication: Product used for unknown indication
     Route: 065

REACTIONS (14)
  - Acute hepatic failure [Fatal]
  - Pneumonia [Unknown]
  - Hallucination [Unknown]
  - Immobile [Unknown]
  - Adverse event [Unknown]
  - Dysuria [Unknown]
  - Urinary retention [Unknown]
  - Pain [Unknown]
  - Product dispensing error [Unknown]
  - Constipation [Unknown]
  - Overdose [Unknown]
  - Tachycardia [Unknown]
  - Abdominal pain [Unknown]
  - Decreased appetite [Unknown]
